FAERS Safety Report 7593747-X (Version None)
Quarter: 2011Q3

REPORT INFORMATION
  Report Type: 
  Country: None (occurrence: None)
  Receive Date: 20110706
  Receipt Date: 20110624
  Transmission Date: 20111222
  Serious: Yes (Hospitalization)
  Sender: FDA-Public Use
  Company Number: PHHO2011US11009

PATIENT
  Sex: Female
  Weight: 112.5 kg

DRUGS (3)
  1. METHOTREXATE [Suspect]
     Dosage: UNKNOWN
     Route: 048
     Dates: start: 20091026, end: 20110609
  2. ASPIRIN [Suspect]
  3. DICLOFENAC SODIUM [Suspect]
     Dosage: UNK

REACTIONS (4)
  - DEHYDRATION [None]
  - NAUSEA [None]
  - VOMITING [None]
  - ABDOMINAL PAIN [None]
